FAERS Safety Report 4409718-8 (Version None)
Quarter: 2004Q3

REPORT INFORMATION
  Report Type: 
  Country: None (occurrence: None)
  Receive Date: 20040727
  Receipt Date: 20040727
  Transmission Date: 20050211
  Serious: Yes (Hospitalization)
  Sender: FDA-Public Use
  Company Number: None

PATIENT
  Age: 53 Year
  Sex: Female
  Weight: 78 kg

DRUGS (12)
  1. THYMOGLOBULIN [Suspect]
     Indication: PROPHYLAXIS AGAINST TRANSPLANT REJECTION
     Dosage: 5/23-5/26 IV 100 MG QD 5/27 HELD 5/28 50 5/29 100 MG
     Route: 042
     Dates: start: 20040523, end: 20040529
  2. PREDNISONE [Concomitant]
  3. MMF [Concomitant]
  4. TACROLIMUS [Concomitant]
  5. MYCELEX [Concomitant]
  6. VOLCYTE [Concomitant]
  7. POTASSIUM PHOSPHATES [Concomitant]
  8. COLACE [Concomitant]
  9. PROTONIX [Concomitant]
  10. ADALAT [Concomitant]
  11. CLONIDINE HCL [Concomitant]
  12. ASPIRIN [Concomitant]

REACTIONS (4)
  - BLOOD PRESSURE SYSTOLIC INCREASED [None]
  - HEART RATE INCREASED [None]
  - MYALGIA [None]
  - SERUM SICKNESS [None]
